FAERS Safety Report 15029678 (Version 2)
Quarter: 2018Q3

REPORT INFORMATION
  Report Type: Spontaneous
  Country: JP (occurrence: JP)
  Receive Date: 20180619
  Receipt Date: 20180803
  Transmission Date: 20181010
  Serious: Yes (Hospitalization, Other)
  Sender: FDA-Public Use
  Company Number: JP-ELI_LILLY_AND_COMPANY-JP201806004008

PATIENT
  Age: 76 Year
  Sex: Male
  Weight: 57 kg

DRUGS (2)
  1. DOCETAXEL. [Suspect]
     Active Substance: DOCETAXEL
     Indication: NON-SMALL CELL LUNG CANCER
     Dosage: 60 MG/M2, SINGLE
     Route: 042
     Dates: start: 20180524, end: 20180524
  2. CYRAMZA [Suspect]
     Active Substance: RAMUCIRUMAB
     Indication: NON-SMALL CELL LUNG CANCER
     Dosage: 10 MG/KG, SINGLE
     Route: 042
     Dates: start: 20180524, end: 20180524

REACTIONS (2)
  - Febrile neutropenia [Recovered/Resolved]
  - Rectal ulcer [Recovering/Resolving]

NARRATIVE: CASE EVENT DATE: 20180530
